FAERS Safety Report 8259721-5 (Version None)
Quarter: 2012Q2

REPORT INFORMATION
  Report Type: 
  Country: None (occurrence: None)
  Receive Date: 20120404
  Receipt Date: 20120329
  Transmission Date: 20120825
  Serious: Yes (Other)
  Sender: FDA-Public Use
  Company Number: US-JNJFOC-20120401269

PATIENT
  Sex: Male

DRUGS (1)
  1. LISTERINE MOUTHWASH (UNSPECIFIED) [Suspect]
     Indication: PROPHYLAXIS
     Route: 048
     Dates: end: 20120101

REACTIONS (1)
  - LIP AND/OR ORAL CAVITY CANCER [None]
